FAERS Safety Report 19026728 (Version 1)
Quarter: 2021Q1

REPORT INFORMATION
  Report Type: Spontaneous
  Country: BR (occurrence: BR)
  Receive Date: 20210318
  Receipt Date: 20210318
  Transmission Date: 20210420
  Serious: Yes (Other)
  Sender: FDA-Public Use
  Company Number: BR-PFIZER INC-2021252571

PATIENT
  Age: 66 Year
  Sex: Male

DRUGS (1)
  1. CELEBRA [Suspect]
     Active Substance: CELECOXIB
     Indication: URINARY TRACT PAIN
     Dosage: 200 MG

REACTIONS (4)
  - Gait inability [Unknown]
  - Sciatica [Unknown]
  - Dysstasia [Unknown]
  - Pain in extremity [Unknown]

NARRATIVE: CASE EVENT DATE: 20210306
